FAERS Safety Report 6179141-7 (Version None)
Quarter: 2009Q2

REPORT INFORMATION
  Report Type: 
  Country: None (occurrence: None)
  Receive Date: 20090430
  Receipt Date: 20090421
  Transmission Date: 20091009
  Serious: Yes (Other)
  Sender: FDA-Public Use
  Company Number: 2009-194753-NL

PATIENT
  Age: 27 Year
  Sex: Female
  Weight: 66.2 kg

DRUGS (1)
  1. IMPLANON [Suspect]
     Indication: CONTRACEPTION
     Dosage: SUBDERMAL
     Route: 059
     Dates: start: 20090406

REACTIONS (4)
  - CONVULSION [None]
  - MALAISE [None]
  - PALLOR [None]
  - PROCEDURAL PAIN [None]
